FAERS Safety Report 9651082 (Version 2)
Quarter: 2013Q4

REPORT INFORMATION
  Report Type: Spontaneous
  Country: US (occurrence: US)
  Receive Date: 20131029
  Receipt Date: 20131202
  Transmission Date: 20140711
  Serious: Yes (Death, Hospitalization)
  Sender: FDA-Public Use
  Company Number: US-PFIZER INC-2013306146

PATIENT
  Age: 68 Year
  Sex: Female

DRUGS (7)
  1. SUTENT [Suspect]
     Indication: RENAL CANCER
     Dosage: 50 MG, CYCLIC DAILY (4 WEEKS ON, 2 WEEKS OFF)
     Route: 048
     Dates: start: 20130930, end: 20131006
  2. ROXANOL [Concomitant]
     Indication: ANALGESIC THERAPY
     Dosage: 20 MG/ML, UNK CONCENTRATED SOLUTION
  3. LOVENOX [Concomitant]
     Dosage: UNK
  4. ALBUTEROL HFA [Concomitant]
     Dosage: UNK
  5. PROVENTIL [Concomitant]
     Dosage: UNK
  6. VENTOLIN [Concomitant]
     Dosage: UNK
  7. PRO-AIR [Concomitant]
     Dosage: UNK

REACTIONS (3)
  - Disease progression [Fatal]
  - Renal cancer [Fatal]
  - Pneumonitis [Unknown]
